FAERS Safety Report 7754433-6 (Version None)
Quarter: 2011Q3

REPORT INFORMATION
  Report Type: 
  Country: None (occurrence: None)
  Receive Date: 20110915
  Receipt Date: 20110908
  Transmission Date: 20111222
  Serious: Yes (Other)
  Sender: FDA-Public Use
  Company Number: US-SANOFI-AVENTIS-2011SA059302

PATIENT
  Age: 59 Year
  Sex: Female

DRUGS (1)
  1. DDAVP [Suspect]
     Indication: VON WILLEBRAND'S DISEASE
     Route: 045

REACTIONS (2)
  - HYPOTENSION [None]
  - ACCIDENTAL OVERDOSE [None]
